FAERS Safety Report 5472607-4 (Version None)
Quarter: 2007Q4

REPORT INFORMATION
  Report Type: 
  Country: None (occurrence: None)
  Receive Date: 20071001
  Receipt Date: 20061025
  Transmission Date: 20080405
  Serious: No
  Sender: FDA-Public Use
  Company Number: US-ASTRAZENECA-2002UW05334

PATIENT
  Age: 62 Year
  Sex: Female
  Weight: 67.6 kg

DRUGS (4)
  1. ARIMIDEX [Suspect]
     Indication: BREAST CANCER FEMALE
     Route: 048
     Dates: start: 20020411
  2. FOSAMAX [Concomitant]
  3. PINDOLOL [Concomitant]
  4. VITAMINS [Concomitant]

REACTIONS (6)
  - ARTHRALGIA [None]
  - HEADACHE [None]
  - HEPATIC ENZYME INCREASED [None]
  - HYPERTENSION [None]
  - MUSCLE SPASMS [None]
  - OSTEOPENIA [None]
